FAERS Safety Report 9080500 (Version 4)
Quarter: 2013Q4

REPORT INFORMATION
  Report Type: Report from Study
  Country: JP (occurrence: JP)
  Receive Date: 20130218
  Receipt Date: 20131211
  Transmission Date: 20140711
  Serious: Yes (Hospitalization)
  Sender: FDA-Public Use
  Company Number: PHHO2013JP002254

PATIENT
  Age: 82 Year
  Sex: Male
  Weight: 57 kg

DRUGS (11)
  1. ACZ885 [Suspect]
     Indication: CARDIOVASCULAR EVENT PROPHYLAXIS
     Dosage: 50 MG, B
     Route: 058
     Dates: start: 20120302, end: 20121221
  2. DIOVAN [Concomitant]
     Indication: HYPERTENSION
     Dosage: 20 MG, UNK
     Route: 048
     Dates: start: 20121013
  3. LIVALO [Concomitant]
     Dosage: 2 MG, UNK
     Route: 048
     Dates: start: 20090718
  4. PLAVIX [Concomitant]
     Indication: MYOCARDIAL INFARCTION
     Dosage: 75 MG, UNK
     Route: 048
     Dates: start: 20090422
  5. ITOROL [Concomitant]
     Indication: ANGINA PECTORIS
     Dosage: 80 MG, UNK
     Route: 048
     Dates: start: 19950327
  6. BAYASPIRIN [Concomitant]
     Indication: MYOCARDIAL INFARCTION
     Dosage: 400 MG, UNK
     Route: 048
     Dates: start: 20090422
  7. ULGUT [Concomitant]
     Indication: GASTRITIS
     Dosage: 1800 MG, UNK
     Route: 048
     Dates: start: 19950522
  8. PARIET [Concomitant]
     Indication: GASTRITIS
     Dosage: 10 MG, UNK
     Route: 048
     Dates: start: 19971127
  9. AMARYL [Concomitant]
     Indication: TYPE 2 DIABETES MELLITUS
     Dosage: 1 MG, UNK
     Route: 048
     Dates: start: 20121222
  10. VOGLIBOSE [Concomitant]
     Indication: TYPE 2 DIABETES MELLITUS
     Dosage: 2.7 MG, UNK
     Route: 048
     Dates: start: 19970325
  11. LANTUS [Concomitant]
     Indication: TYPE 2 DIABETES MELLITUS
     Dosage: UNK
     Route: 058
     Dates: start: 20100716

REACTIONS (1)
  - Interstitial lung disease [Not Recovered/Not Resolved]
